FAERS Safety Report 8617457-2 (Version None)
Quarter: 2012Q3

REPORT INFORMATION
  Report Type: 
  Country: None (occurrence: None)
  Receive Date: 20120824
  Receipt Date: 20111025
  Transmission Date: 20120928
  Serious: No
  Sender: FDA-Public Use
  Company Number: US-ASTRAZENECA-2011SE64452

PATIENT
  Age: 78 Year
  Sex: Female
  Weight: 72.6 kg

DRUGS (2)
  1. LISINOPRIL [Concomitant]
     Indication: BLOOD PRESSURE
  2. SYMBICORT [Suspect]
     Indication: CHRONIC OBSTRUCTIVE PULMONARY DISEASE
     Dosage: 1 PUFF TWO TIMES A DAY
     Route: 055
     Dates: start: 20110906

REACTIONS (10)
  - DYSPNOEA [None]
  - EAR PRURITUS [None]
  - CHOKING SENSATION [None]
  - SLEEP DISORDER DUE TO A GENERAL MEDICAL CONDITION [None]
  - PARAESTHESIA [None]
  - MUSCLE SPASMS [None]
  - FATIGUE [None]
  - CHEST PAIN [None]
  - INCREASED UPPER AIRWAY SECRETION [None]
  - TREMOR [None]
